FAERS Safety Report 14027804 (Version 3)
Quarter: 2018Q1

REPORT INFORMATION
  Report Type: Spontaneous
  Country: US (occurrence: US)
  Receive Date: 20170929
  Receipt Date: 20180216
  Transmission Date: 20180508
  Serious: Yes (Other)
  Sender: FDA-Public Use
  Company Number: US-PFIZER INC-2017417151

PATIENT
  Age: 55 Year
  Sex: Male

DRUGS (5)
  1. PHENYTOIN SODIUM. [Suspect]
     Active Substance: PHENYTOIN SODIUM
     Indication: AURA
     Dosage: 430 MG, DAILY (230 MG AM, 200 MG PM)
  2. LIPITOR [Concomitant]
     Active Substance: ATORVASTATIN CALCIUM
     Dosage: 20 MG, UNK
     Dates: start: 2009
  3. PHENYTOIN SODIUM. [Suspect]
     Active Substance: PHENYTOIN SODIUM
     Indication: SEIZURE
     Dosage: 350 MG, DAILY
     Dates: start: 1995
  4. LOTREL [Concomitant]
     Active Substance: AMLODIPINE BESYLATE\BENAZEPRIL HYDROCHLORIDE
     Dosage: UNK UNK [AMLODIPINE: 5 MG] / [BENAZEPRIL: 20 MG]
     Dates: start: 2008
  5. PHENYTOIN SODIUM. [Suspect]
     Active Substance: PHENYTOIN SODIUM
     Indication: GENERALISED TONIC-CLONIC SEIZURE
     Dosage: 200 MG, 2X/DAY (2X200 AT 8 AM/PM )

REACTIONS (5)
  - Balance disorder [Unknown]
  - Aura [Unknown]
  - Dizziness [Unknown]
  - Gingival disorder [Recovered/Resolved]
  - Seizure [Unknown]

NARRATIVE: CASE EVENT DATE: 200106
